FAERS Safety Report 9069731 (Version 1)
Quarter: 2013Q1

REPORT INFORMATION
  Report Type: Report from Study
  Country: US (occurrence: US)
  Receive Date: 20130131
  Receipt Date: 20130131
  Transmission Date: 20140127
  Serious: No
  Sender: FDA-Public Use
  Company Number: US-ABBOTT-12P-163-1005536-00

PATIENT
  Age: 52 Year
  Sex: Female

DRUGS (8)
  1. HUMIRA [Suspect]
  2. MELOXICAM [Concomitant]
     Indication: RHEUMATOID ARTHRITIS
  3. GENERIC NEXIUM [Concomitant]
     Indication: GASTROOESOPHAGEAL REFLUX DISEASE
  4. GENERIC TAMOXIFEN [Concomitant]
     Indication: BREAST CANCER
  5. FOLIC ACID [Concomitant]
     Indication: VITAMIN SUPPLEMENTATION
  6. METHOTREXATE [Concomitant]
     Indication: PRODUCT USED FOR UNKNOWN INDICATION
     Dosage: 10 PILLS WEEKLY
  7. METHOTREXATE [Concomitant]
     Dosage: 8 PILLS WEEKLY
  8. METHOTREXATE [Concomitant]
     Dosage: 5 PILLS WEEKLY

REACTIONS (2)
  - Injection site pain [Recovered/Resolved]
  - Drug administered at inappropriate site [Recovered/Resolved]
